FAERS Safety Report 8614293-8 (Version None)
Quarter: 2012Q3

REPORT INFORMATION
  Report Type: 
  Country: None (occurrence: None)
  Receive Date: 20120813
  Receipt Date: 20120813
  Transmission Date: 20120928
  Serious: Yes (Other)
  Sender: FDA-Public Use
  Company Number: None

PATIENT
  Age: 78 Year
  Sex: Female
  Weight: 62 kg

DRUGS (8)
  1. CHLORTHALIDONE [Concomitant]
  2. PLAVIX [Concomitant]
  3. TIZANIDINE HYDROCHLORIDE [Suspect]
     Dosage: 4MG QHS BY MOUTH
     Route: 048
     Dates: end: 20120810
  4. METOPROLOL TARTRATE [Concomitant]
  5. COZAAR [Concomitant]
  6. CRESTOR [Concomitant]
  7. ASPIRIN [Concomitant]
  8. TEMAZEPAM [Concomitant]

REACTIONS (1)
  - BLOOD PRESSURE DECREASED [None]
